FAERS Safety Report 4912147-1 (Version None)
Quarter: 2006Q1

REPORT INFORMATION
  Report Type: 
  Country: None (occurrence: None)
  Receive Date: 20060215
  Receipt Date: 20050804
  Transmission Date: 20060701
  Serious: No
  Sender: FDA-Public Use
  Company Number: US-GLAXOSMITHKLINE-A0568963A

PATIENT
  Age: 52 Year
  Sex: Female
  Weight: 54.1 kg

DRUGS (2)
  1. VALTREX [Suspect]
     Dosage: 1G THREE TIMES PER DAY
     Route: 048
     Dates: start: 20050801, end: 20050801
  2. NO CONCURRENT MEDICATION [Concomitant]

REACTIONS (6)
  - BLISTER [None]
  - CHILLS [None]
  - FUNGAL INFECTION [None]
  - HEADACHE [None]
  - PYREXIA [None]
  - VOMITING [None]
